FAERS Safety Report 8289231-0 (Version None)
Quarter: 2012Q2

REPORT INFORMATION
  Report Type: 
  Country: None (occurrence: None)
  Receive Date: 20120417
  Receipt Date: 20120410
  Transmission Date: 20120825
  Serious: Yes (Other)
  Sender: FDA-Public Use
  Company Number: PHHY2012DE031459

PATIENT
  Sex: Female

DRUGS (3)
  1. ZOMETA [Suspect]
     Indication: BREAST CANCER
     Dosage: 4 MG, EVERY 3 MONTHS
     Dates: start: 20070101, end: 20090101
  2. TAMOXIFEN CITRATE [Concomitant]
  3. ZOMETA [Suspect]
     Dosage: 4 MG, EVERY 6 MONTHS
     Dates: end: 20110101

REACTIONS (5)
  - LOOSE TOOTH [None]
  - JAW DISORDER [None]
  - PERIODONTITIS [None]
  - PAIN IN JAW [None]
  - OSTEITIS [None]
